FAERS Safety Report 7787292-6 (Version None)
Quarter: 2011Q3

REPORT INFORMATION
  Report Type: 
  Country: None (occurrence: None)
  Receive Date: 20110929
  Receipt Date: 20110916
  Transmission Date: 20111222
  Serious: Yes (Other)
  Sender: FDA-Public Use
  Company Number: PHHY2011BR83877

PATIENT
  Age: 55 Year
  Sex: Male

DRUGS (2)
  1. ENALAPRIL MALEATE [Suspect]
  2. METFORMIN HCL [Suspect]

REACTIONS (17)
  - GLYCOSYLATED HAEMOGLOBIN INCREASED [None]
  - BLOOD TRIGLYCERIDES INCREASED [None]
  - LOW DENSITY LIPOPROTEIN INCREASED [None]
  - BLOOD GLUCOSE INCREASED [None]
  - BLOOD CREATININE INCREASED [None]
  - GLOMERULAR FILTRATION RATE DECREASED [None]
  - MICROALBUMINURIA [None]
  - LEFT VENTRICULAR FAILURE [None]
  - LEFT VENTRICULAR HYPERTROPHY [None]
  - BODY MASS INDEX INCREASED [None]
  - BLOOD UREA INCREASED [None]
  - BLOOD CHOLESTEROL INCREASED [None]
  - OBESITY [None]
  - HIGH DENSITY LIPOPROTEIN DECREASED [None]
  - DYSLIPIDAEMIA [None]
  - TYPE 2 DIABETES MELLITUS [None]
  - HYPERTENSION [None]
